FAERS Safety Report 5723263-9 (Version None)
Quarter: 2008Q2

REPORT INFORMATION
  Report Type: 
  Country: None (occurrence: None)
  Receive Date: 20080430
  Receipt Date: 20080215
  Transmission Date: 20081010
  Serious: No
  Sender: FDA-Public Use
  Company Number: US-ASTRAZENECA-2008UW03146

PATIENT

DRUGS (1)
  1. NEXIUM [Suspect]
     Route: 048
     Dates: start: 20070801

REACTIONS (9)
  - COUGH [None]
  - DYSGEUSIA [None]
  - DYSPNOEA [None]
  - FATIGUE [None]
  - HEADACHE [None]
  - LENTIGO [None]
  - SWELLING [None]
  - TONGUE DISORDER [None]
  - WEIGHT INCREASED [None]
